FAERS Safety Report 9671161 (Version 1)
Quarter: 2013Q4

REPORT INFORMATION
  Report Type: Spontaneous
  Country: US (occurrence: US)
  Receive Date: 20131106
  Receipt Date: 20131106
  Transmission Date: 20140711
  Serious: Yes (Hospitalization, Other)
  Sender: FDA-Public Use
  Company Number: US-BAXTER-2013BAX042943

PATIENT
  Sex: Male

DRUGS (18)
  1. DIANEAL LOW CALCIUM [Suspect]
     Indication: PERITONEAL DIALYSIS
     Route: 033
     Dates: start: 201301
  2. DIANEAL LOW CALCIUM [Suspect]
  3. DIANEAL LOW CALCIUM [Suspect]
  4. DIANEAL LOW CALCIUM [Suspect]
     Indication: PERITONEAL DIALYSIS
     Route: 033
     Dates: start: 201301
  5. DIANEAL LOW CALCIUM [Suspect]
  6. DIANEAL LOW CALCIUM [Suspect]
  7. DIANEAL LOW CALCIUM [Suspect]
     Indication: PERITONEAL DIALYSIS
     Route: 033
     Dates: start: 201301
  8. DIANEAL LOW CALCIUM [Suspect]
  9. DIANEAL LOW CALCIUM [Suspect]
  10. DIANEAL LOW CALCIUM (ULTRABAG) [Suspect]
     Indication: PERITONEAL DIALYSIS
     Route: 033
     Dates: start: 201301
  11. DIANEAL LOW CALCIUM (ULTRABAG) [Suspect]
  12. DIANEAL LOW CALCIUM (ULTRABAG) [Suspect]
  13. DIANEAL LOW CALCIUM (ULTRABAG) [Suspect]
     Indication: PERITONEAL DIALYSIS
     Route: 033
     Dates: start: 201301
  14. DIANEAL LOW CALCIUM (ULTRABAG) [Suspect]
  15. DIANEAL LOW CALCIUM (ULTRABAG) [Suspect]
  16. DIANEAL LOW CALCIUM (ULTRABAG) [Suspect]
     Indication: PERITONEAL DIALYSIS
     Route: 033
     Dates: start: 201301
  17. DIANEAL LOW CALCIUM (ULTRABAG) [Suspect]
  18. DIANEAL LOW CALCIUM (ULTRABAG) [Suspect]

REACTIONS (3)
  - Procedural pain [Recovered/Resolved]
  - Abdominal hernia [Recovering/Resolving]
  - Abdominal pain [Recovering/Resolving]
